FAERS Safety Report 14215610 (Version 1)
Quarter: 2017Q4

REPORT INFORMATION
  Report Type: Spontaneous
  Country: US (occurrence: US)
  Receive Date: 20171122
  Receipt Date: 20171122
  Transmission Date: 20180321
  Serious: Yes (Other)
  Sender: FDA-Public Use
  Company Number: US-JNJFOC-20171113376

PATIENT
  Age: 37 Year
  Sex: Female

DRUGS (1)
  1. INFLIXIMAB, RECOMBINANT [Suspect]
     Active Substance: INFLIXIMAB
     Indication: AUTOIMMUNE DISORDER
     Route: 042

REACTIONS (3)
  - Product use in unapproved indication [Unknown]
  - Tubulointerstitial nephritis [Recovered/Resolved]
  - Off label use [Unknown]
